FAERS Safety Report 4337306-0 (Version None)
Quarter: 2004Q2

REPORT INFORMATION
  Report Type: 
  Country: None (occurrence: None)
  Receive Date: 20040412
  Receipt Date: 20040412
  Transmission Date: 20050107
  Serious: Yes (Death)
  Sender: FDA-Public Use
  Company Number: None

PATIENT
  Age: 7 Year
  Sex: Male

DRUGS (1)
  1. ORFADIN [Suspect]
     Indication: NEOPLASM MALIGNANT
     Dosage: 120 MILLIGRAM ONCE DAILY ORAL
     Route: 048
     Dates: start: 20020618, end: 20040302

REACTIONS (1)
  - HEPATIC FAILURE [None]
